FAERS Safety Report 9232339 (Version 1)
Quarter: 2013Q2

REPORT INFORMATION
  Report Type: Spontaneous
  Country: US (occurrence: US)
  Receive Date: 20130416
  Receipt Date: 20130416
  Transmission Date: 20140414
  Serious: No
  Sender: FDA-Public Use
  Company Number: US-009507513-1304USA007058

PATIENT
  Age: 65 Year
  Sex: Female

DRUGS (3)
  1. VICTRELIS [Suspect]
     Indication: HEPATITIS C
     Dosage: 800 MG, TID
     Route: 048
  2. PEGINTRON [Suspect]
     Dosage: UNK
     Dates: start: 20130101
  3. PEGASYS [Suspect]

REACTIONS (2)
  - Vomiting [Unknown]
  - Migraine [Unknown]
